FAERS Safety Report 16258713 (Version 1)
Quarter: 2019Q2

REPORT INFORMATION
  Report Type: Spontaneous
  Country: US (occurrence: US)
  Receive Date: 20190430
  Receipt Date: 20190430
  Transmission Date: 20190711
  Serious: Yes (Other)
  Sender: FDA-Public Use
  Company Number: PHEH2019US017815

PATIENT
  Age: 80 Year
  Sex: Male

DRUGS (1)
  1. DUREZOL [Suspect]
     Active Substance: DIFLUPREDNATE
     Indication: UVEITIS
     Dosage: 1 GTT, QID
     Route: 047

REACTIONS (2)
  - Intraocular pressure increased [Not Recovered/Not Resolved]
  - Retinal vein occlusion [Not Recovered/Not Resolved]
